FAERS Safety Report 4846789-9 (Version None)
Quarter: 2005Q4

REPORT INFORMATION
  Report Type: 
  Country: None (occurrence: None)
  Receive Date: 20051201
  Receipt Date: 20051114
  Transmission Date: 20060501
  Serious: Yes (Other)
  Sender: FDA-Public Use
  Company Number: US200511000920

PATIENT
  Age: 58 Year
  Sex: Female

DRUGS (7)
  1. CYMBALTA [Suspect]
     Dosage: 60 MG, DAILY (1/D)
     Dates: start: 20041101
  2. XANAX   /USA/ (ALPRAZOLAM) [Concomitant]
  3. SYNTHROID [Concomitant]
  4. PREMPRO [Concomitant]
  5. ZETIA [Concomitant]
  6. FIORICET [Concomitant]
  7. INTERFERON (INTERFERON) [Concomitant]

REACTIONS (4)
  - CONVERSION DISORDER [None]
  - CRYING [None]
  - MALIGNANT MELANOMA [None]
  - RECURRENT CANCER [None]
